FAERS Safety Report 8580352-1 (Version None)
Quarter: 2012Q3

REPORT INFORMATION
  Report Type: 
  Country: None (occurrence: None)
  Receive Date: 20120808
  Receipt Date: 20120803
  Transmission Date: 20120928
  Serious: Yes (Hospitalization)
  Sender: FDA-Public Use
  Company Number: US-PFIZER INC-2012106252

PATIENT
  Age: 45 Year
  Sex: Male

DRUGS (9)
  1. FLUCONAZOLE [Suspect]
     Indication: PROPHYLAXIS
  2. SPRYCEL [Suspect]
     Dosage: 50 MG, CYCLIC, (TOTAL DOSE 1800 MG)
     Dates: start: 20120319
  3. ACYCLOVIR [Suspect]
     Indication: PROPHYLAXIS
  4. DAUNORUBICIN HCL [Suspect]
     Indication: ACUTE MYELOID LEUKAEMIA
     Dosage: 60 MG/M2, CYCLIC, (TOTAL 5 COURSES OF THERAPY)
     Route: 042
     Dates: start: 20111224
  5. CYTARABINE [Suspect]
     Indication: ACUTE MYELOID LEUKAEMIA
     Dosage: 200 MG/M2, CYCLIC,  (TOTAL DOSE 43.02 MG)
     Route: 042
     Dates: start: 20111224
  6. SPRYCEL [Suspect]
     Dosage: 100 MG, CYCLIC, (TOTAL DOSE 2100 MG)
     Dates: start: 20120530
  7. SPRYCEL [Suspect]
     Indication: ACUTE MYELOID LEUKAEMIA
     Dosage: 100 MG, CYCLIC
     Route: 048
     Dates: start: 20111224
  8. CYTARABINE [Suspect]
     Dosage: 200 MG/M2, CYCLIC, (TOTAL DOSE 44.46 G)
     Dates: start: 20120530
  9. PIPERACILLIN [Suspect]
     Indication: PROPHYLAXIS

REACTIONS (2)
  - ELECTROCARDIOGRAM QT PROLONGED [None]
  - FEBRILE NEUTROPENIA [None]
